FAERS Safety Report 22255667 (Version 1)
Quarter: 2023Q2

REPORT INFORMATION
  Report Type: Spontaneous
  Country: US (occurrence: None)
  Receive Date: 20230425
  Receipt Date: 20230425
  Transmission Date: 20230722
  Serious: No
  Sender: FDA-Public Use
  Company Number: None

PATIENT
  Age: 76 Year
  Sex: Male
  Weight: 99.79 kg

DRUGS (18)
  1. ABIRATERONE ACETATE [Suspect]
     Active Substance: ABIRATERONE ACETATE
     Indication: Prostate cancer
     Dosage: 1000MG DAILY ORAL
     Route: 048
  2. AMBIEN [Concomitant]
     Active Substance: ZOLPIDEM TARTRATE
  3. ATORVASTATIN [Concomitant]
  4. BICALUTAMIDE [Concomitant]
  5. DEXAMETHASONE [Concomitant]
  6. ELIQUIS [Concomitant]
     Active Substance: APIXABAN
  7. FAMOTIDINE [Concomitant]
     Active Substance: FAMOTIDINE
  8. LEVOTHYROXINE [Concomitant]
     Active Substance: LEVOTHYROXINE
  9. LOPERAMIDE [Concomitant]
     Active Substance: LOPERAMIDE
  10. LOSARTAN [Concomitant]
     Active Substance: LOSARTAN
  11. MORPHINE [Concomitant]
     Active Substance: MORPHINE
  12. MS [Concomitant]
  13. MULTIVITAMIN [Concomitant]
  14. NARCAN [Concomitant]
  15. NORCO [Concomitant]
     Active Substance: ACETAMINOPHEN\HYDROCODONE BITARTRATE
  16. PANTOPRAZOLE [Concomitant]
  17. PREDNISONE [Concomitant]
  18. PROCHLORPERAZINE [Concomitant]

REACTIONS (2)
  - Neurogenic tumour [None]
  - Spinal fracture [None]

NARRATIVE: CASE EVENT DATE: 20230425
